FAERS Safety Report 5115547-2 (Version None)
Quarter: 2006Q3

REPORT INFORMATION
  Report Type: 
  Country: None (occurrence: None)
  Receive Date: 20060925
  Receipt Date: 20060915
  Transmission Date: 20061208
  Serious: Yes (Other)
  Sender: FDA-Public Use
  Company Number: 163-21880-06090672

PATIENT
  Age: 72 Year
  Sex: Male

DRUGS (1)
  1. REVLIMID [Suspect]
     Indication: LEUKAEMIA
     Dosage: 10 MG, EVERY OTHER DAY, ORAL
     Route: 048
     Dates: start: 20060901

REACTIONS (3)
  - DEAFNESS [None]
  - ERYTHEMA [None]
  - RASH [None]
